FAERS Safety Report 10099533 (Version 1)
Quarter: 2014Q2

REPORT INFORMATION
  Report Type: Spontaneous
  Country: CN (occurrence: CN)
  Receive Date: 20140423
  Receipt Date: 20140423
  Transmission Date: 20141212
  Serious: Yes (Life-Threatening)
  Sender: FDA-Public Use
  Company Number: CN-BAYER-2014-057385

PATIENT
  Age: 50 Year
  Sex: Male

DRUGS (2)
  1. IOPROMIDE [Suspect]
     Indication: IMAGING PROCEDURE
     Dosage: 90 ML, ONCE
     Route: 041
     Dates: start: 20131128, end: 20131128
  2. IOPROMIDE [Suspect]
     Indication: DUODENAL ULCER

REACTIONS (2)
  - Syncope [Recovering/Resolving]
  - Hyperhidrosis [Recovering/Resolving]
